FAERS Safety Report 10567001 (Version 1)
Quarter: 2014Q4

REPORT INFORMATION
  Report Type: Spontaneous
  Country: US (occurrence: US)
  Receive Date: 20141105
  Receipt Date: 20141105
  Transmission Date: 20150529
  Serious: No
  Sender: FDA-Public Use
  Company Number: US-009507513-1410USA015941

PATIENT
  Age: 73 Year
  Sex: Female

DRUGS (1)
  1. EMEND [Suspect]
     Active Substance: APREPITANT
     Indication: PROPHYLAXIS OF NAUSEA AND VOMITING
     Dosage: EMEND TRIFOLD PACK
     Route: 048
     Dates: start: 20140902, end: 20140925

REACTIONS (1)
  - Treatment failure [Recovered/Resolved]

NARRATIVE: CASE EVENT DATE: 20140924
